FAERS Safety Report 10723149 (Version 1)
Quarter: 2015Q1

REPORT INFORMATION
  Report Type: Spontaneous
  Country: US (occurrence: US)
  Receive Date: 20150120
  Receipt Date: 20150120
  Transmission Date: 20150721
  Serious: No
  Sender: FDA-Public Use
  Company Number: US-PFIZER INC-2014357790

PATIENT
  Age: 67 Year
  Sex: Female
  Weight: 83 kg

DRUGS (2)
  1. VENLAFAXINE HCL [Suspect]
     Active Substance: VENLAFAXINE HYDROCHLORIDE
     Indication: FIBROMYALGIA
     Dosage: 37.5 MG, 1X/DAY
     Dates: start: 201412
  2. DULOXETINE [Suspect]
     Active Substance: DULOXETINE
     Indication: FIBROMYALGIA
     Dosage: UNK (LOW DOSE ), 1X/DAY
     Dates: start: 201410, end: 201411

REACTIONS (1)
  - Drug ineffective for unapproved indication [Unknown]

NARRATIVE: CASE EVENT DATE: 201410
